FAERS Safety Report 9799556 (Version 1)
Quarter: 2014Q1

REPORT INFORMATION
  Report Type: Spontaneous
  Country: US (occurrence: US)
  Receive Date: 20140106
  Receipt Date: 20140106
  Transmission Date: 20141002
  Serious: Yes (Hospitalization)
  Sender: FDA-Public Use
  Company Number: US-GILEAD-2010-0030213

PATIENT
  Age: 67 Year
  Sex: Male

DRUGS (18)
  1. LETAIRIS [Suspect]
     Indication: PULMONARY ARTERIAL HYPERTENSION
     Route: 048
     Dates: start: 20090909
  2. REVATIO [Concomitant]
  3. COUMADIN [Concomitant]
  4. PLAVIX [Concomitant]
  5. FUROSEMIDE [Concomitant]
  6. METOLAZONE [Concomitant]
  7. ACTOPLUS MET [Concomitant]
  8. ASPIRIN FREE [Concomitant]
  9. GARLIC [Concomitant]
  10. FISH OIL [Concomitant]
  11. GLIMEPIRIDE [Concomitant]
  12. POTASSIUM [Concomitant]
  13. SELENIUM [Concomitant]
  14. B COMPLEX [Concomitant]
  15. BP VIT 3 [Concomitant]
  16. D3-50 [Concomitant]
  17. VITAMIN E [Concomitant]
  18. MULTI-DAY TAB/IRON [Concomitant]

REACTIONS (1)
  - Dyspnoea [Unknown]
